FAERS Safety Report 9594783 (Version 1)
Quarter: 2013Q3

REPORT INFORMATION
  Report Type: Spontaneous
  Country: US (occurrence: None)
  Receive Date: 20130927
  Receipt Date: 20130927
  Transmission Date: 20140515
  Serious: Yes (Hospitalization)
  Sender: FDA-Public Use
  Company Number: CABO-13003151

PATIENT
  Age: 43 Year
  Sex: Female

DRUGS (2)
  1. COMETRIQ [Suspect]
     Indication: THYROID CANCER
     Route: 048
     Dates: start: 20130807, end: 20130808
  2. COMETRIQ [Suspect]
     Indication: METASTASES TO BONE
     Route: 048
     Dates: start: 20130807, end: 20130808

REACTIONS (1)
  - Hypotension [None]
